FAERS Safety Report 24148971 (Version 1)
Quarter: 2024Q3

REPORT INFORMATION
  Report Type: Spontaneous
  Country: US (occurrence: US)
  Receive Date: 20240729
  Receipt Date: 20240729
  Transmission Date: 20241017
  Serious: No
  Sender: PFIZER
  Company Number: US-PFIZER INC-PV202400097661

PATIENT
  Age: 37 Year
  Sex: Male

DRUGS (4)
  1. METHYLPREDNISOLONE [Suspect]
     Active Substance: METHYLPREDNISOLONE
     Indication: Lip swelling
     Dosage: UNK
  2. EPINEPHRINE [Suspect]
     Active Substance: EPINEPHRINE
     Dosage: UNK
  3. BENADRYL [Suspect]
     Active Substance: DIPHENHYDRAMINE HYDROCHLORIDE
     Dosage: UNK
  4. FAMOTIDINE [Suspect]
     Active Substance: FAMOTIDINE

REACTIONS (2)
  - Throat irritation [Unknown]
  - Rash [Unknown]

NARRATIVE: CASE EVENT DATE: 20240519
